FAERS Safety Report 11889283 (Version 2)
Quarter: 2016Q1

REPORT INFORMATION
  Report Type: Spontaneous
  Country: US (occurrence: US)
  Receive Date: 20160105
  Receipt Date: 20160212
  Transmission Date: 20160526
  Serious: No
  Sender: FDA-Public Use
  Company Number: US-ASTRAZENECA-2014SE57558

PATIENT
  Age: 73 Year
  Sex: Female
  Weight: 92.5 kg

DRUGS (3)
  1. VITAMINS NOS [Concomitant]
     Active Substance: VITAMINS
  2. INSULIN [Concomitant]
     Active Substance: INSULIN NOS
  3. BYDUREON [Suspect]
     Active Substance: EXENATIDE
     Indication: TYPE 2 DIABETES MELLITUS
     Route: 058

REACTIONS (4)
  - Renal function test abnormal [Unknown]
  - Product quality issue [Unknown]
  - Injection site bruising [Unknown]
  - Injection site pain [Unknown]
